FAERS Safety Report 7928427-1 (Version None)
Quarter: 2011Q4

REPORT INFORMATION
  Report Type: 
  Country: None (occurrence: None)
  Receive Date: 20111118
  Receipt Date: 20111114
  Transmission Date: 20120403
  Serious: Yes (Other)
  Sender: FDA-Public Use
  Company Number: PHHY2011FR100544

PATIENT

DRUGS (1)
  1. ONBREZ [Suspect]

REACTIONS (2)
  - LOSS OF CONSCIOUSNESS [None]
  - COUGH [None]
